FAERS Safety Report 26013113 (Version 1)
Quarter: 2025Q4

REPORT INFORMATION
  Report Type: Spontaneous
  Country: US (occurrence: US)
  Receive Date: 20251107
  Receipt Date: 20251107
  Transmission Date: 20260118
  Serious: No
  Sender: SANOFI AVENTIS
  Company Number: US-SA-2025SA328188

PATIENT
  Age: 33 Year
  Sex: Female
  Weight: 64.99 kg

DRUGS (4)
  1. DUPIXENT [Suspect]
     Active Substance: DUPILUMAB
     Indication: Dermatitis atopic
     Dosage: 300 MG, QOW
     Route: 058
  2. EUCERIN [SOFT SOAP] [Concomitant]
     Dosage: UNK
  3. VITAMIN D NOS [Concomitant]
     Active Substance: CHOLECALCIFEROL\ERGOCALCIFEROL
     Dosage: UNK
  4. B COMPLEX [BIOTIN;CALCIUM PANTOTHENATE;CYANOCOBALAMIN;FOLIC ACID;NICOT [Concomitant]
     Dosage: UNK

REACTIONS (7)
  - Ocular hyperaemia [Not Recovered/Not Resolved]
  - Eye irritation [Not Recovered/Not Resolved]
  - Eyelid margin crusting [Not Recovered/Not Resolved]
  - Eye swelling [Not Recovered/Not Resolved]
  - Pruritus [Not Recovered/Not Resolved]
  - Skin fissures [Not Recovered/Not Resolved]
  - Dry eye [Not Recovered/Not Resolved]

NARRATIVE: CASE EVENT DATE: 20250101
